FAERS Safety Report 10562990 (Version 1)
Quarter: 2014Q4

REPORT INFORMATION
  Report Type: Spontaneous
  Country: US (occurrence: None)
  Receive Date: 20141103
  Receipt Date: 20141103
  Transmission Date: 20150529
  Serious: Yes (Other)
  Sender: FDA-Public Use
  Company Number: None

PATIENT
  Age: 55 Year
  Sex: Male
  Weight: 65.77 kg

DRUGS (1)
  1. DULERA [Suspect]
     Active Substance: FORMOTEROL FUMARATE DIHYDRATE\MOMETASONE FUROATE
     Indication: ASTHMA PROPHYLAXIS
     Route: 055
     Dates: start: 20140912, end: 20141102

REACTIONS (5)
  - Headache [None]
  - Ocular discomfort [None]
  - Vision blurred [None]
  - Abasia [None]
  - Eye pain [None]

NARRATIVE: CASE EVENT DATE: 20141102
